FAERS Safety Report 9283864 (Version 4)
Quarter: 2013Q2

REPORT INFORMATION
  Report Type: Spontaneous
  Country: US (occurrence: US)
  Receive Date: 20130510
  Receipt Date: 20130610
  Transmission Date: 20140414
  Serious: Yes (Death, Hospitalization)
  Sender: FDA-Public Use
  Company Number: US-GILEAD-2013-0075051

PATIENT
  Age: 47 Year
  Sex: Female

DRUGS (3)
  1. LETAIRIS [Suspect]
     Indication: PULMONARY HYPERTENSION
     Dosage: 10 MG, QD
     Dates: start: 20090702
  2. LETAIRIS [Suspect]
     Indication: PULMONARY HYPERTENSION
     Dates: start: 20090702
  3. VENTAVIS [Concomitant]

REACTIONS (2)
  - Pneumonia [Unknown]
  - Right ventricular failure [Fatal]
